FAERS Safety Report 9656694 (Version 2)
Quarter: 2013Q4

REPORT INFORMATION
  Report Type: Spontaneous
  Country: CH (occurrence: CH)
  Receive Date: 20131030
  Receipt Date: 20131106
  Transmission Date: 20140711
  Serious: Yes (Other)
  Sender: FDA-Public Use
  Company Number: CH-BAYER-2013-131305

PATIENT
  Age: 66 Year
  Sex: Male

DRUGS (1)
  1. BETAFERON [Suspect]
     Dosage: UNK
     Dates: start: 2006

REACTIONS (1)
  - Injection site necrosis [None]
